FAERS Safety Report 10223381 (Version 1)
Quarter: 2014Q2

REPORT INFORMATION
  Report Type: Spontaneous
  Country: TR (occurrence: TR)
  Receive Date: 20140609
  Receipt Date: 20140609
  Transmission Date: 20141212
  Serious: Yes (Life-Threatening)
  Sender: FDA-Public Use
  Company Number: TR-ROCHE-1414946

PATIENT
  Age: 49 Year
  Sex: Female
  Weight: 89 kg

DRUGS (2)
  1. HERCEPTIN [Suspect]
     Indication: BREAST CANCER
     Route: 042
     Dates: start: 20140116, end: 20140403
  2. DOCETAXEL [Concomitant]
     Indication: BREAST CANCER
     Route: 065
     Dates: start: 20140116, end: 20140403

REACTIONS (2)
  - Systolic dysfunction [Recovered/Resolved]
  - Mitral valve incompetence [Not Recovered/Not Resolved]
